FAERS Safety Report 17450443 (Version 1)
Quarter: 2020Q1

REPORT INFORMATION
  Report Type: Spontaneous
  Country: US (occurrence: US)
  Receive Date: 20200210
  Receipt Date: 20200210
  Transmission Date: 20200409
  Serious: No
  Sender: FDA-Public Use
  Company Number: None

PATIENT
  Age: 61 Year
  Sex: Female

DRUGS (1)
  1. IBRANCE [Suspect]
     Active Substance: PALBOCICLIB
     Indication: BREAST CANCER
     Route: 048
     Dates: start: 202001

REACTIONS (5)
  - Vomiting [None]
  - Feeding disorder [None]
  - Taste disorder [None]
  - Dehydration [None]
  - Abdominal distension [None]

NARRATIVE: CASE EVENT DATE: 20200210
